FAERS Safety Report 17228795 (Version 1)
Quarter: 2020Q1

REPORT INFORMATION
  Report Type: Spontaneous
  Country: ES (occurrence: ES)
  Receive Date: 20200103
  Receipt Date: 20200103
  Transmission Date: 20200409
  Serious: Yes (Hospitalization)
  Sender: FDA-Public Use
  Company Number: ES-ASTRAZENECA-2019SF90569

PATIENT
  Age: 65 Year
  Sex: Male

DRUGS (11)
  1. BRILIQUE [Suspect]
     Active Substance: TICAGRELOR
     Route: 048
     Dates: start: 20190624
  2. PARACETAMOL KERN PHARMA [Concomitant]
     Route: 048
     Dates: start: 20120613
  3. LOBIVON PLUS [Concomitant]
     Active Substance: HYDROCHLOROTHIAZIDE\NEBIVOLOL HYDROCHLORIDE
     Dosage: 5 MG/12,5 MG, 1 DF DAILY
     Route: 048
     Dates: start: 20120613
  4. TROMALYT [Interacting]
     Active Substance: ASPIRIN
     Route: 048
     Dates: start: 20190619
  5. ZALDIAR [Concomitant]
     Active Substance: ACETAMINOPHEN\TRAMADOL HYDROCHLORIDE
     Dosage: 37.5 MG/325 MG, 1 DF EVERY EIGHT HOURS
     Route: 048
     Dates: start: 20141223
  6. TRINISPRAY [Concomitant]
     Dosage: 0,4 MG / 0,05 ML, 400 UG/INHAL DAILY
     Route: 060
     Dates: start: 20150211
  7. METFORMIN CINFA [Concomitant]
     Route: 048
     Dates: start: 20190516
  8. PROCORALAN [Concomitant]
     Active Substance: IVABRADINE
     Route: 048
     Dates: start: 20130403
  9. ATORVASTATIN CINFA [Concomitant]
     Route: 048
     Dates: start: 20120613
  10. LANSOPRAZOL CINFA [Concomitant]
     Route: 048
     Dates: start: 20120613
  11. MICARDIS [Concomitant]
     Active Substance: TELMISARTAN
     Route: 048
     Dates: start: 20140122

REACTIONS (1)
  - Iron deficiency anaemia [Recovering/Resolving]

NARRATIVE: CASE EVENT DATE: 20191126
